FAERS Safety Report 8231604-6 (Version None)
Quarter: 2012Q1

REPORT INFORMATION
  Report Type: 
  Country: None (occurrence: None)
  Receive Date: 20120323
  Receipt Date: 20120312
  Transmission Date: 20120608
  Serious: Yes (Hospitalization, Other)
  Sender: FDA-Public Use
  Company Number: JP-ELI_LILLY_AND_COMPANY-JP201110005034

PATIENT
  Age: 67 Year
  Sex: Female

DRUGS (1)
  1. FORTEO [Suspect]
     Dosage: UNK
     Route: 058
     Dates: start: 20111013

REACTIONS (10)
  - UPPER LIMB FRACTURE [None]
  - PAIN IN EXTREMITY [None]
  - POLLAKIURIA [None]
  - INJECTION SITE HAEMATOMA [None]
  - FALL [None]
  - HEADACHE [None]
  - BIRTH MARK [None]
  - FEELING DRUNK [None]
  - STOMATITIS [None]
  - RIB FRACTURE [None]
